FAERS Safety Report 6306345-2 (Version None)
Quarter: 2009Q3

REPORT INFORMATION
  Report Type: 
  Country: None (occurrence: None)
  Receive Date: 20090810
  Receipt Date: 20090730
  Transmission Date: 20100115
  Serious: Yes (Congenital Anomaly)
  Sender: FDA-Public Use
  Company Number: GXKR2009CH08784

PATIENT
  Sex: Male
  Weight: 2.6 kg

DRUGS (3)
  1. ZOLPIDEM [Suspect]
     Dosage: SEE IMAGE
     Route: 064
     Dates: end: 20080101
  2. ZOLPIDEM [Suspect]
     Dosage: SEE IMAGE
     Route: 064
     Dates: start: 20071116
  3. ANXIOLIT (OXAZEPAM) CAPSULE, 15MG [Suspect]
     Dosage: MATERNAL DOSE: 1-2 CAPSULES/DAY, TRANSPIACENTAL
     Route: 064
     Dates: start: 20071116, end: 20071201

REACTIONS (2)
  - FOETAL GROWTH RETARDATION [None]
  - MATERNAL DRUGS AFFECTING FOETUS [None]
